FAERS Safety Report 5726788-5 (Version None)
Quarter: 2008Q2

REPORT INFORMATION
  Report Type: 
  Country: None (occurrence: None)
  Receive Date: 20080502
  Receipt Date: 20080422
  Transmission Date: 20081010
  Serious: Yes (Hospitalization)
  Sender: FDA-Public Use
  Company Number: US-JNJFOC-20080406274

PATIENT
  Sex: Male

DRUGS (1)
  1. REGRANEX [Suspect]
     Indication: DIABETIC ULCER
     Dates: start: 19990501, end: 19990801

REACTIONS (1)
  - RENAL CELL CARCINOMA [None]
